FAERS Safety Report 6472738-6 (Version None)
Quarter: 2009Q4

REPORT INFORMATION
  Report Type: 
  Country: None (occurrence: None)
  Receive Date: 20091201
  Receipt Date: 20091113
  Transmission Date: 20100525
  Serious: Yes (Other)
  Sender: FDA-Public Use
  Company Number: 2009SP036326

PATIENT
  Age: 40 Year
  Sex: Female

DRUGS (1)
  1. CELESTONE SOLUSPAN [Suspect]
     Indication: DYSPNOEA
     Dosage: IM
     Route: 030

REACTIONS (2)
  - BLOOD PRESSURE DECREASED [None]
  - PRESYNCOPE [None]
